FAERS Safety Report 10358299 (Version 1)
Quarter: 2014Q3

REPORT INFORMATION
  Report Type: Spontaneous
  Country: CN (occurrence: CN)
  Receive Date: 20140801
  Receipt Date: 20140801
  Transmission Date: 20150326
  Serious: Yes (Other)
  Sender: FDA-Public Use
  Company Number: CN-BRISTOL-MYERS SQUIBB COMPANY-21269071

PATIENT
  Age: 28 Year
  Sex: Female
  Weight: 43 kg

DRUGS (1)
  1. ABILIFY [Suspect]
     Active Substance: ARIPIPRAZOLE
     Indication: SCHIZOPHRENIA
     Route: 048
     Dates: start: 20130311, end: 20130404

REACTIONS (1)
  - Dysuria [Recovered/Resolved]

NARRATIVE: CASE EVENT DATE: 20130325
